FAERS Safety Report 8143885-8 (Version None)
Quarter: 2012Q1

REPORT INFORMATION
  Report Type: 
  Country: None (occurrence: None)
  Receive Date: 20120217
  Receipt Date: 20120208
  Transmission Date: 20120608
  Serious: Yes (Other)
  Sender: FDA-Public Use
  Company Number: CA-JNJFOC-20120205651

PATIENT
  Sex: Female
  Weight: 58 kg

DRUGS (4)
  1. NAPROXEN [Concomitant]
     Indication: RHEUMATOID ARTHRITIS
     Dates: start: 20090901
  2. PREVACID [Concomitant]
     Indication: GASTROINTESTINAL DISORDER THERAPY
     Dates: start: 20090901
  3. REMICADE [Suspect]
     Indication: RHEUMATOID ARTHRITIS
     Dates: start: 20100706, end: 20111219
  4. METHOTREXATE [Concomitant]
     Indication: RHEUMATOID ARTHRITIS
     Route: 048
     Dates: start: 20090921

REACTIONS (1)
  - THYROID CANCER [None]
